FAERS Safety Report 11676853 (Version 2)
Quarter: 2016Q2

REPORT INFORMATION
  Report Type: Spontaneous
  Country: US (occurrence: US)
  Receive Date: 20151028
  Receipt Date: 20160516
  Transmission Date: 20160815
  Serious: No
  Sender: FDA-Public Use
  Company Number: ADR-2015-01425

PATIENT
  Age: 68 Year
  Sex: Male

DRUGS (11)
  1. OXYCONTIN [Suspect]
     Active Substance: OXYCODONE HYDROCHLORIDE
  2. OXYCODONE [Suspect]
     Active Substance: OXYCODONE
  3. BUPIVACAINE. [Suspect]
     Active Substance: BUPIVACAINE
     Dosage: 3.0766 MG/DAY
     Route: 037
  4. DILAUDID [Suspect]
     Active Substance: HYDROMORPHONE HYDROCHLORIDE
     Dosage: 0.7096 MG/DAY
     Route: 037
     Dates: start: 20150430
  5. MORPHINE [Suspect]
     Active Substance: MORPHINE
     Dosage: 2.7469 MG/DAY
     Route: 037
  6. CLONIDINE. [Suspect]
     Active Substance: CLONIDINE
     Dosage: 187.89 MCG/DAY
     Route: 037
  7. COMPOUNDED BACLOFEN [Suspect]
     Active Substance: BACLOFEN
     Dosage: 375.78 MCG/DAY
     Route: 037
  8. COMPOUNDED BACLOFEN [Suspect]
     Active Substance: BACLOFEN
     Dosage: 425.75 MCG/DAY
     Route: 037
     Dates: start: 20150430
  9. CLONIDINE. [Suspect]
     Active Substance: CLONIDINE
     Dosage: 106.44 MCG/DAY
     Route: 037
     Dates: start: 20150430
  10. BUPIVACAINE. [Suspect]
     Active Substance: BUPIVACAINE
     Dosage: 17.740 MG/DAY
     Route: 037
     Dates: start: 20150430
  11. OXYCODONE-ACETAMINOPHEN [Suspect]
     Active Substance: ACETAMINOPHEN\OXYCODONE HYDROCHLORIDE

REACTIONS (6)
  - Somnolence [Recovered/Resolved]
  - Adverse drug reaction [Recovered/Resolved]
  - Mental status changes [Recovered/Resolved]
  - Overdose [Recovered/Resolved]
  - Pain [Recovered/Resolved]
  - Hallucination [Recovered/Resolved]

NARRATIVE: CASE EVENT DATE: 20150625
